FAERS Safety Report 23751851 (Version 1)
Quarter: 2024Q2

REPORT INFORMATION
  Report Type: Spontaneous
  Country: US (occurrence: None)
  Receive Date: 20240417
  Receipt Date: 20240417
  Transmission Date: 20240716
  Serious: No
  Sender: FDA-Public Use
  Company Number: 2024A067305

PATIENT
  Sex: Female

DRUGS (1)
  1. SYMBICORT [Suspect]
     Active Substance: BUDESONIDE\FORMOTEROL FUMARATE DIHYDRATE
     Dosage: 80 UG UNKNOWN FREQUENCY UNKNOWN
     Route: 055
     Dates: start: 20240201

REACTIONS (4)
  - Visual impairment [Unknown]
  - Cough [Unknown]
  - Product dose omission issue [Unknown]
  - Device issue [Unknown]
